FAERS Safety Report 9919319 (Version 2)
Quarter: 2014Q1

REPORT INFORMATION
  Report Type: Spontaneous
  Country: US (occurrence: US)
  Receive Date: 20140224
  Receipt Date: 20140224
  Transmission Date: 20141002
  Serious: Yes (Disabling)
  Sender: FDA-Public Use
  Company Number: US-GE HEALTHCARE MEDICAL DIAGNOSTICS-OSCN-PR-0908S-0404

PATIENT
  Age: 45 Year
  Sex: Female

DRUGS (16)
  1. OMNISCAN [Suspect]
     Indication: PRODUCT USED FOR UNKNOWN INDICATION
     Route: 042
     Dates: start: 20060128, end: 20060128
  2. OMNISCAN [Suspect]
     Indication: PRODUCT USED FOR UNKNOWN INDICATION
     Route: 042
     Dates: start: 20060207, end: 20060207
  3. OMNISCAN [Suspect]
     Indication: PRODUCT USED FOR UNKNOWN INDICATION
     Route: 042
     Dates: start: 20060717, end: 20060717
  4. GADOLINIUM (UNSPECIFIED) [Suspect]
     Indication: PRODUCT USED FOR UNKNOWN INDICATION
     Dates: start: 20060421, end: 20060421
  5. MAGNEVIST [Suspect]
     Indication: FISTULA REPAIR
     Route: 042
     Dates: start: 20061207, end: 20061207
  6. MAGNEVIST [Suspect]
     Route: 042
     Dates: start: 20070523, end: 20070523
  7. COUMADIN [Concomitant]
     Indication: PRODUCT USED FOR UNKNOWN INDICATION
     Route: 048
  8. AMIODARONE [Concomitant]
     Indication: PRODUCT USED FOR UNKNOWN INDICATION
     Route: 048
  9. ENALAPRIL [Concomitant]
     Indication: PRODUCT USED FOR UNKNOWN INDICATION
  10. TOPROL XL [Concomitant]
     Indication: PRODUCT USED FOR UNKNOWN INDICATION
  11. EPOGEN [Concomitant]
     Indication: DIALYSIS
     Route: 058
  12. NITROGLYCERIN [Concomitant]
     Indication: PAIN
     Route: 060
  13. PREDNISONE [Concomitant]
     Indication: PAIN
     Dates: start: 20070823
  14. SIMVASTATIN [Concomitant]
     Indication: PRODUCT USED FOR UNKNOWN INDICATION
  15. VISIPAQUE [Concomitant]
     Indication: PRODUCT USED FOR UNKNOWN INDICATION
     Dates: start: 20060424
  16. VISIPAQUE [Concomitant]
     Dates: start: 20060424

REACTIONS (1)
  - Nephrogenic systemic fibrosis [Not Recovered/Not Resolved]
